FAERS Safety Report 14256175 (Version 3)
Quarter: 2018Q2

REPORT INFORMATION
  Report Type: Report from Study
  Country: US (occurrence: US)
  Receive Date: 20171206
  Receipt Date: 20180621
  Transmission Date: 20180711
  Serious: Yes (Hospitalization, Other)
  Sender: FDA-Public Use
  Company Number: US-APOPHARMA INC-2017AP022175

PATIENT
  Age: 18 Year
  Sex: Female
  Weight: 48 kg

DRUGS (14)
  1. FERRIPROX [Suspect]
     Active Substance: DEFERIPRONE
     Indication: ANAEMIA
     Dosage: 42 MG/KG, BID
     Route: 048
     Dates: start: 20161105
  2. FOLIC ACID. [Concomitant]
     Active Substance: FOLIC ACID
     Indication: ERYTHROPOIESIS ABNORMAL
     Dosage: 1 MG, UNKNOWN
     Route: 048
     Dates: start: 20101217
  3. PRILOSEC [Concomitant]
     Active Substance: OMEPRAZOLE MAGNESIUM
     Indication: GASTROOESOPHAGEAL REFLUX DISEASE
  4. MULTIVITAMINS                      /00116001/ [Concomitant]
     Active Substance: VITAMINS
     Indication: SUPPLEMENTATION THERAPY
     Dosage: 1 DF, UNKNOWN
     Route: 048
     Dates: start: 20150414
  5. MOTRIN [Concomitant]
     Active Substance: IBUPROFEN
     Indication: PYREXIA
  6. MELATONIN [Concomitant]
     Active Substance: MELATONIN
     Indication: INSOMNIA
     Dosage: 5 MG, UNKNOWN
     Route: 048
     Dates: start: 20140828, end: 20171220
  7. FERRIPROX [Suspect]
     Active Substance: DEFERIPRONE
     Indication: HAEMOCHROMATOSIS
  8. PENICILLIN VK [Concomitant]
     Active Substance: PENICILLIN V POTASSIUM
     Indication: SPLENECTOMY
     Dosage: 250 MG, BID
     Route: 048
     Dates: start: 20060701
  9. MIRALAX [Concomitant]
     Active Substance: POLYETHYLENE GLYCOL 3350
     Indication: CONSTIPATION
     Dosage: UNK, UNKNOWN
     Route: 048
     Dates: start: 20080207
  10. MELATONIN [Concomitant]
     Active Substance: MELATONIN
     Dosage: 10 MG, UNKNOWN
     Route: 048
     Dates: start: 20140828, end: 20171220
  11. PRILOSEC [Concomitant]
     Active Substance: OMEPRAZOLE MAGNESIUM
     Indication: ABDOMINAL DISCOMFORT
     Dosage: 40 MG, QD
     Route: 048
     Dates: start: 20161105, end: 20180104
  12. ACTIGALL [Concomitant]
     Active Substance: URSODIOL
     Indication: CHOLELITHIASIS
     Dosage: 600 MG, BID
     Route: 048
     Dates: start: 20160130
  13. SENNOSIDE                          /00571901/ [Concomitant]
     Active Substance: SENNOSIDES A AND B
     Indication: CONSTIPATION
     Dosage: 8.6 MG, OTHER
     Route: 048
     Dates: start: 20030702, end: 20161105
  14. MOTRIN [Concomitant]
     Active Substance: IBUPROFEN
     Indication: PAIN
     Dosage: 400 MG, PRN
     Route: 048
     Dates: start: 20141121

REACTIONS (9)
  - Liver function test increased [Not Recovered/Not Resolved]
  - Blood bilirubin increased [Unknown]
  - Liver function test increased [Not Recovered/Not Resolved]
  - Hepatic cirrhosis [Unknown]
  - White blood cell count increased [Unknown]
  - Haemoglobin decreased [Unknown]
  - Haemoglobin decreased [Unknown]
  - White blood cell count increased [Unknown]
  - Blood bilirubin increased [Unknown]

NARRATIVE: CASE EVENT DATE: 20171004
